FAERS Safety Report 5593379-9 (Version None)
Quarter: 2008Q1

REPORT INFORMATION
  Report Type: 
  Country: None (occurrence: None)
  Receive Date: 20080114
  Receipt Date: 20080103
  Transmission Date: 20080703
  Serious: Yes (Life-Threatening, Hospitalization)
  Sender: FDA-Public Use
  Company Number: 2007BI016430

PATIENT
  Age: 41 Year
  Sex: Male
  Weight: 125 kg

DRUGS (7)
  1. TYSABRI [Suspect]
     Indication: RELAPSING-REMITTING MULTIPLE SCLEROSIS
     Dosage: 300 MG;QM;IV
     Route: 042
     Dates: start: 20060801
  2. CORONAR [Concomitant]
  3. BLOODPRESS PLUS [Concomitant]
  4. ASPIRIN [Concomitant]
  5. ACOMPLIA [Concomitant]
  6. HOMEOPATIC MEDICINE [Concomitant]
  7. INEGY [Concomitant]

REACTIONS (2)
  - CORONARY ARTERY STENOSIS [None]
  - MYOCARDIAL INFARCTION [None]
